FAERS Safety Report 4661206-X (Version None)
Quarter: 2005Q2

REPORT INFORMATION
  Report Type: 
  Country: None (occurrence: None)
  Receive Date: 20050513
  Receipt Date: 20050504
  Transmission Date: 20051028
  Serious: Yes (Other)
  Sender: FDA-Public Use
  Company Number: US-BRISTOL-MYERS SQUIBB COMPANY-12955415

PATIENT
  Sex: Female

DRUGS (2)
  1. COUMADIN [Suspect]
  2. ASPIRIN [Suspect]
     Route: 048

REACTIONS (4)
  - COAGULOPATHY [None]
  - HAEMORRHAGE [None]
  - RENAL FAILURE [None]
  - SCRATCH [None]
